FAERS Safety Report 16505893 (Version 1)
Quarter: 2019Q3

REPORT INFORMATION
  Report Type: Spontaneous
  Country: US (occurrence: US)
  Receive Date: 20190520
  Receipt Date: 20190520
  Transmission Date: 20191004
  Serious: Yes (Life-Threatening)
  Sender: FDA-Public Use
  Company Number: None

PATIENT
  Age: 76 Year
  Sex: Female
  Weight: 65.77 kg

DRUGS (3)
  1. VERAPAMIL [Concomitant]
     Active Substance: VERAPAMIL HYDROCHLORIDE
  2. LISINOPRIL. [Concomitant]
     Active Substance: LISINOPRIL
  3. CEPHALEXIN. [Suspect]
     Active Substance: CEPHALEXIN
     Indication: INFECTION PROPHYLAXIS
     Dosage: ?          QUANTITY:500 MG MILLIGRAM(S);?
     Route: 048
     Dates: start: 20190304, end: 20190331

REACTIONS (19)
  - Nausea [None]
  - Coordination abnormal [None]
  - Lymph node pain [None]
  - Pharyngeal swelling [None]
  - Dizziness [None]
  - Asthenia [None]
  - Eye pain [None]
  - Gait inability [None]
  - Feeling cold [None]
  - Swelling face [None]
  - Eye irritation [None]
  - Chills [None]
  - Drooling [None]
  - Lip swelling [None]
  - Tinnitus [None]
  - Pain [None]
  - Oropharyngeal pain [None]
  - Aphonia [None]
  - Dysphonia [None]

NARRATIVE: CASE EVENT DATE: 20190330
